FAERS Safety Report 22225645 (Version 1)
Quarter: 2023Q2

REPORT INFORMATION
  Report Type: Spontaneous
  Country: CA (occurrence: CA)
  Receive Date: 20230418
  Receipt Date: 20230418
  Transmission Date: 20230721
  Serious: Yes (Other)
  Sender: FDA-Public Use
  Company Number: CA-FreseniusKabi-FK202304830

PATIENT
  Age: 63 Year
  Sex: Male

DRUGS (2)
  1. FENTANYL [Suspect]
     Active Substance: FENTANYL
     Indication: Bronchoscopy
     Dosage: DOSAGE FORM: NOT SPECIFIED
     Route: 065
  2. MIDAZOLAM [Suspect]
     Active Substance: MIDAZOLAM
     Indication: Bronchoscopy
     Route: 065

REACTIONS (2)
  - Unresponsive to stimuli [Unknown]
  - Hypotension [Unknown]
